FAERS Safety Report 8622011-2 (Version None)
Quarter: 2012Q3

REPORT INFORMATION
  Report Type: 
  Country: None (occurrence: None)
  Receive Date: 20120823
  Receipt Date: 20120823
  Transmission Date: 20120928
  Serious: No
  Sender: FDA-Public Use
  Company Number: None

PATIENT
  Sex: Female

DRUGS (2)
  1. OXALIPLATIN [Suspect]
     Dosage: 130MG IV
     Route: 042
  2. LEVOLEUCOVORIN [Suspect]
     Dosage: 100MG IV
     Route: 042

REACTIONS (3)
  - NAUSEA [None]
  - HEADACHE [None]
  - PRURITUS [None]
